APPROVED DRUG PRODUCT: PARACAINE
Active Ingredient: PROPARACAINE HYDROCHLORIDE
Strength: 0.5%
Dosage Form/Route: SOLUTION/DROPS;OPHTHALMIC
Application: A087681 | Product #001
Applicant: OPTOPICS LABORATORIES CORP
Approved: Aug 5, 1982 | RLD: No | RS: No | Type: DISCN